FAERS Safety Report 6928341-4 (Version None)
Quarter: 2010Q3

REPORT INFORMATION
  Report Type: 
  Country: None (occurrence: None)
  Receive Date: 20100817
  Receipt Date: 20100805
  Transmission Date: 20110219
  Serious: Yes (Other)
  Sender: FDA-Public Use
  Company Number: US-BAYER-201030431NA

PATIENT
  Age: 35 Year
  Sex: Male
  Weight: 137 kg

DRUGS (4)
  1. MAGNEVIST [Suspect]
     Indication: NUCLEAR MAGNETIC RESONANCE IMAGING BRAIN
     Dosage: TOTAL DAILY DOSE: 20 ML
     Route: 042
     Dates: start: 20011220, end: 20011220
  2. MAGNEVIST [Suspect]
     Route: 042
     Dates: start: 20011031, end: 20011031
  3. GLUCOPHAGE [Concomitant]
  4. AVENA [Concomitant]

REACTIONS (9)
  - ARTHRALGIA [None]
  - HYPOAESTHESIA [None]
  - NEPHROGENIC SYSTEMIC FIBROSIS [None]
  - OEDEMA PERIPHERAL [None]
  - PARAESTHESIA [None]
  - PRURITUS [None]
  - SKIN EXFOLIATION [None]
  - SKIN INDURATION [None]
  - SKIN TIGHTNESS [None]
